APPROVED DRUG PRODUCT: FENTANYL CITRATE
Active Ingredient: FENTANYL CITRATE
Strength: EQ 0.8MG BASE
Dosage Form/Route: TABLET;BUCCAL, SUBLINGUAL
Application: A079075 | Product #005
Applicant: WATSON LABORATORIES INC
Approved: Jan 7, 2011 | RLD: No | RS: No | Type: DISCN